FAERS Safety Report 4922912-2 (Version None)
Quarter: 2006Q1

REPORT INFORMATION
  Report Type: 
  Country: None (occurrence: None)
  Receive Date: 20060224
  Receipt Date: 20050317
  Transmission Date: 20060701
  Serious: Yes (Hospitalization)
  Sender: FDA-Public Use
  Company Number: US-MERCK-0503USA03421

PATIENT
  Age: 41 Year
  Sex: Female
  Weight: 63 kg

DRUGS (11)
  1. VIOXX [Suspect]
     Indication: SPINAL FUSION SURGERY
     Route: 048
     Dates: start: 20020610, end: 20040927
  2. AVINZA [Concomitant]
     Route: 065
  3. MOBIC [Concomitant]
     Route: 065
  4. PROVIGIL [Concomitant]
     Route: 065
  5. CIPRO [Concomitant]
     Route: 065
  6. OXYCONTIN [Concomitant]
     Route: 065
  7. ATENOLOL [Concomitant]
     Route: 065
  8. DIFLUCAN [Concomitant]
     Route: 065
  9. LAMISIL [Concomitant]
     Route: 065
  10. AMBIEN [Concomitant]
     Route: 065
  11. AMOXILLIN [Concomitant]
     Route: 065

REACTIONS (3)
  - BACK PAIN [None]
  - CORONARY ARTERY DISEASE [None]
  - HYPERLIPIDAEMIA [None]
